FAERS Safety Report 5800586-6 (Version None)
Quarter: 2008Q3

REPORT INFORMATION
  Report Type: 
  Country: None (occurrence: None)
  Receive Date: 20080703
  Receipt Date: 20080623
  Transmission Date: 20090109
  Serious: Yes (Other)
  Sender: FDA-Public Use
  Company Number: US-BAYER-200826613NA

PATIENT
  Sex: Female

DRUGS (1)
  1. TRASYLOL [Suspect]
     Indication: CORONARY ARTERY BYPASS
     Dates: start: 20060309

REACTIONS (9)
  - ANHEDONIA [None]
  - ANXIETY [None]
  - DEPRESSION [None]
  - FEAR [None]
  - ILL-DEFINED DISORDER [None]
  - INJURY [None]
  - PAIN [None]
  - RENAL FAILURE [None]
  - UNEVALUABLE EVENT [None]
